FAERS Safety Report 13241977 (Version 1)
Quarter: 2017Q1

REPORT INFORMATION
  Report Type: Report from Study
  Country: US (occurrence: US)
  Receive Date: 20170217
  Receipt Date: 20170217
  Transmission Date: 20170428
  Serious: Yes (Life-Threatening, Hospitalization, Other)
  Sender: FDA-Public Use
  Company Number: US-CELGENEUS-USA-2017023945

PATIENT
  Age: 54 Year
  Sex: Male
  Weight: 80.81 kg

DRUGS (4)
  1. FLUOCINONIDE. [Concomitant]
     Active Substance: FLUOCINONIDE
     Indication: PSORIASIS
     Dosage: 2 GRAM
     Route: 061
     Dates: start: 20170124
  2. FLUOCINONIDE. [Concomitant]
     Active Substance: FLUOCINONIDE
     Indication: RASH
  3. CC-10004 [Suspect]
     Active Substance: APREMILAST
     Indication: ANKYLOSING SPONDYLITIS
     Route: 048
     Dates: end: 20170209
  4. CICLOPIROX. [Concomitant]
     Active Substance: CICLOPIROX
     Indication: ONYCHOMYCOSIS
     Dosage: 2 DROPS
     Route: 061
     Dates: start: 20170124

REACTIONS (3)
  - Suicidal ideation [Not Recovered/Not Resolved]
  - Muscular weakness [Unknown]
  - Facial paralysis [Unknown]

NARRATIVE: CASE EVENT DATE: 20170210
